FAERS Safety Report 4948861-1 (Version None)
Quarter: 2006Q1

REPORT INFORMATION
  Report Type: 
  Country: None (occurrence: None)
  Receive Date: 20060315
  Receipt Date: 20060302
  Transmission Date: 20060701
  Serious: Yes (Death, Other)
  Sender: FDA-Public Use
  Company Number: 2005145560

PATIENT
  Age: 33 Year
  Sex: Male

DRUGS (6)
  1. NEURONTIN [Suspect]
     Indication: DEPRESSION
  2. VIAGRA [Suspect]
     Indication: ILL-DEFINED DISORDER
     Dosage: 50 MG (AS NECESSARY)
  3. INDERAL [Suspect]
     Indication: HYPERTENSION
     Dosage: 160 MEQ (80 MG, 2 IN 1 D)
  4. IMIPRAMINE [Suspect]
     Indication: DEPRESSION
  5. ETHANOL (ETHANOL) [Suspect]
     Indication: ILL-DEFINED DISORDER
     Dosage: ORAL
     Route: 048
  6. BUSPAR [Concomitant]

REACTIONS (23)
  - ACUTE PULMONARY OEDEMA [None]
  - ACUTE RESPIRATORY DISTRESS SYNDROME [None]
  - ALCOHOL USE [None]
  - ATELECTASIS [None]
  - CARDIO-RESPIRATORY ARREST [None]
  - CEREBRAL ATROPHY [None]
  - COMPLETED SUICIDE [None]
  - CONVULSION [None]
  - DEPRESSION [None]
  - DIFFICULT TO WEAN FROM VENTILATOR [None]
  - DISORIENTATION [None]
  - DRUG INEFFECTIVE [None]
  - DYSARTHRIA [None]
  - ELECTROENCEPHALOGRAM ABNORMAL [None]
  - HYPOXIC ENCEPHALOPATHY [None]
  - MULTIPLE DRUG OVERDOSE INTENTIONAL [None]
  - OCULAR HYPERAEMIA [None]
  - PARANOIA [None]
  - PNEUMONIA ASPIRATION [None]
  - RESPIRATORY FAILURE [None]
  - SINUS TACHYCARDIA [None]
  - SOMNOLENCE [None]
  - TOXIC INDUCED ENCEPHALOPATHY [None]
